FAERS Safety Report 14578700 (Version 2)
Quarter: 2018Q1

REPORT INFORMATION
  Report Type: Spontaneous
  Country: FR (occurrence: FR)
  Receive Date: 20180227
  Receipt Date: 20180301
  Transmission Date: 20180509
  Serious: Yes (Other)
  Sender: FDA-Public Use
  Company Number: FR-PFIZER INC-2018077730

PATIENT
  Age: 72 Year
  Sex: Male
  Weight: 75.5 kg

DRUGS (2)
  1. HEPARINE SODIUM PANPHARMA [Interacting]
     Active Substance: HEPARIN SODIUM
     Dosage: 25000 IU, 1X/DAY
     Route: 041
     Dates: start: 20180128, end: 20180128
  2. ATRACURIUM BESILATE [Suspect]
     Active Substance: ATRACURIUM BESYLATE
     Dosage: 40 MG, UNK
     Route: 041
     Dates: start: 20180128, end: 20180128

REACTIONS (1)
  - Drug chemical incompatibility [Recovered/Resolved]

NARRATIVE: CASE EVENT DATE: 20180128
